FAERS Safety Report 8029522-1 (Version None)
Quarter: 2012Q1

REPORT INFORMATION
  Report Type: 
  Country: None (occurrence: None)
  Receive Date: 20120109
  Receipt Date: 20111230
  Transmission Date: 20120608
  Serious: No
  Sender: FDA-Public Use
  Company Number: US-BIOGENIDEC-2011BI049113

PATIENT
  Sex: Female

DRUGS (4)
  1. AVONEX [Suspect]
     Route: 030
     Dates: start: 20111229
  2. AVONEX [Suspect]
     Route: 030
     Dates: start: 20111215, end: 20111221
  3. AVONEX [Suspect]
     Route: 030
     Dates: start: 20111222, end: 20111228
  4. AVONEX [Suspect]
     Indication: MULTIPLE SCLEROSIS
     Route: 030
     Dates: start: 20111208, end: 20111214

REACTIONS (4)
  - POLLAKIURIA [None]
  - INFLUENZA LIKE ILLNESS [None]
  - ARTHRALGIA [None]
  - MUSCULAR WEAKNESS [None]
